FAERS Safety Report 17128590 (Version 1)
Quarter: 2019Q4

REPORT INFORMATION
  Report Type: Report from Study
  Country: CO (occurrence: CO)
  Receive Date: 20191209
  Receipt Date: 20191209
  Transmission Date: 20200122
  Serious: Yes (Hospitalization)
  Sender: FDA-Public Use
  Company Number: PHHY2019CO113732

PATIENT
  Sex: Female

DRUGS (1)
  1. VOTRIENT [Suspect]
     Active Substance: PAZOPANIB HYDROCHLORIDE
     Indication: METASTATIC RENAL CELL CARCINOMA
     Dosage: 800 MG, QD
     Route: 048
     Dates: start: 20180723

REACTIONS (7)
  - Ulcer [Unknown]
  - Haematemesis [Unknown]
  - Mobility decreased [Unknown]
  - Alopecia [Unknown]
  - Diarrhoea haemorrhagic [Unknown]
  - Pain in extremity [Unknown]
  - Vomiting [Unknown]
